FAERS Safety Report 16163054 (Version 1)
Quarter: 2020Q3

REPORT INFORMATION
  Report Type: Spontaneous
  Country: AR (occurrence: AR)
  Receive Date: 20190405
  Receipt Date: 20190405
  Transmission Date: 20201104
  Serious: Yes (Other)
  Sender: FDA-Public Use
  Company Number: IND-AR-009507513-1903ARG012300

PATIENT
  Age: 83 Year
  Sex: Female

DRUGS (2)
  1. GLUCOSAMINE [Concomitant]
     Active Substance: GLUCOSAMINE
     Indication: ARTHRALGIA
  2. ETORICOXIB. [Suspect]
     Active Substance: ETORICOXIB
     Indication: ARTHRALGIA
     Dosage: 90 MILLIGRAM/DAY
     Route: 048

REACTIONS (2)
  - Autoimmune haemolytic anaemia [Recovered/Resolved]
  - Acute kidney injury [Recovered/Resolved]
